FAERS Safety Report 6219309-4 (Version None)
Quarter: 2009Q2

REPORT INFORMATION
  Report Type: 
  Country: None (occurrence: None)
  Receive Date: 20090609
  Receipt Date: 20090529
  Transmission Date: 20091009
  Serious: Yes (Death, Hospitalization)
  Sender: FDA-Public Use
  Company Number: US-BAYER-200826293GPV

PATIENT
  Age: 75 Year
  Sex: Male
  Weight: 59 kg

DRUGS (12)
  1. CAMPATH [Suspect]
     Indication: CHRONIC LYMPHOCYTIC LEUKAEMIA
     Dosage: TOTAL DAILY DOSE: 30 MG
     Route: 058
     Dates: start: 20080618, end: 20080704
  2. CAMPATH [Suspect]
     Dosage: TOTAL DAILY DOSE: 30 MG
     Route: 058
     Dates: start: 20080704, end: 20080922
  3. DIGOXIN [Concomitant]
     Dates: start: 20080930
  4. AMINOFILIN [Concomitant]
     Indication: PROPHYLAXIS
     Dates: start: 20080928, end: 20081005
  5. AMINOSTERIL [Concomitant]
     Indication: PROPHYLAXIS
     Dates: start: 20080924, end: 20080930
  6. BROMAZEPAM [Concomitant]
     Indication: PROPHYLAXIS
     Dates: start: 20080928, end: 20080928
  7. MORPHIN [Concomitant]
     Dates: start: 20080928, end: 20081003
  8. ALBUMIN (HUMAN) [Concomitant]
     Dates: start: 20080925, end: 20080926
  9. POTASSIUM CHLORIDE [Concomitant]
     Dates: start: 20080920, end: 20081002
  10. TRIMETOPRIM + SULFAMETOXAZOL [Concomitant]
     Dates: start: 20080929
  11. TRIMETOPRIM + SULFAMETOXAZOL [Concomitant]
     Dates: start: 20080623, end: 20080929
  12. ACYCLOVIR [Concomitant]
     Indication: ANTIVIRAL PROPHYLAXIS
     Dates: start: 20080623, end: 20080929

REACTIONS (4)
  - ABSCESS JAW [None]
  - ACUTE RESPIRATORY DISTRESS SYNDROME [None]
  - BRONCHOPNEUMONIA [None]
  - HEPATORENAL SYNDROME [None]
